FAERS Safety Report 5741180-5 (Version None)
Quarter: 2008Q2

REPORT INFORMATION
  Report Type: 
  Country: None (occurrence: None)
  Receive Date: 20080514
  Receipt Date: 20080430
  Transmission Date: 20081010
  Serious: No
  Sender: FDA-Public Use
  Company Number: TPA2008A00599

PATIENT
  Age: 43 Year
  Sex: Female
  Weight: 51.7101 kg

DRUGS (7)
  1. ROZEREM [Suspect]
     Indication: RAPID EYE MOVEMENTS SLEEP ABNORMAL
     Dosage: 8 MG, QHS, PER ORAL; 8 MG, QHS, PER ORAL
     Route: 048
     Dates: start: 20080426, end: 20080426
  2. ROZEREM [Suspect]
     Indication: RAPID EYE MOVEMENTS SLEEP ABNORMAL
     Dosage: 8 MG, QHS, PER ORAL; 8 MG, QHS, PER ORAL
     Route: 048
     Dates: start: 20080428, end: 20080429
  3. PROZAC [Concomitant]
  4. SYNTHROID [Concomitant]
  5. ULTRAM ER (TRAMADOL HYDROCHLORIDE) [Concomitant]
  6. ZANAFLEX (TIZANIDINE HYDROCHLORIDE) (4 MILLIGRAM, TABLETS) [Concomitant]
  7. BOTOX (BOTULINUM TOXIN TYPE A) [Concomitant]

REACTIONS (11)
  - DISORIENTATION [None]
  - DIZZINESS [None]
  - DYSARTHRIA [None]
  - DYSGEUSIA [None]
  - FEELING ABNORMAL [None]
  - HEADACHE [None]
  - INAPPROPRIATE SCHEDULE OF DRUG ADMINISTRATION [None]
  - NAUSEA [None]
  - PARAESTHESIA ORAL [None]
  - THROAT TIGHTNESS [None]
  - VISION BLURRED [None]
